FAERS Safety Report 19775001 (Version 1)
Quarter: 2021Q3

REPORT INFORMATION
  Report Type: Spontaneous
  Country: US (occurrence: US)
  Receive Date: 20210901
  Receipt Date: 20210901
  Transmission Date: 20211014
  Serious: Yes (Hospitalization)
  Sender: FDA-Public Use
  Company Number: US-MYLANLABS-2021M1057781

PATIENT
  Age: 27 Year
  Sex: Male

DRUGS (3)
  1. LIDOCAINE. [Suspect]
     Active Substance: LIDOCAINE
     Indication: LOCAL ANAESTHESIA
     Dosage: INTRAMEDULLARY
  2. BUPIVACAINE. [Suspect]
     Active Substance: BUPIVACAINE
     Indication: LOCAL ANAESTHESIA
     Dosage: INTRAMEDULLARY
  3. DEXAMETHASONE. [Suspect]
     Active Substance: DEXAMETHASONE
     Indication: PRODUCT USED FOR UNKNOWN INDICATION
     Dosage: INTRAMEDULLARY

REACTIONS (5)
  - Quadriparesis [Recovered/Resolved with Sequelae]
  - Allodynia [Recovering/Resolving]
  - Spinal cord injury [Recovering/Resolving]
  - Pain [Recovering/Resolving]
  - Wrong technique in product usage process [Recovering/Resolving]
